FAERS Safety Report 19475628 (Version 6)
Quarter: 2023Q1

REPORT INFORMATION
  Report Type: Other
  Country: US (occurrence: None)
  Receive Date: 20210630
  Receipt Date: 20230315
  Transmission Date: 20230417
  Serious: Yes (Hospitalization)
  Sender: FDA-Public Use
  Company Number: US-ROCHE-2857525

PATIENT
  Sex: Male
  Weight: 143.01 kg

DRUGS (24)
  1. XOLAIR [Suspect]
     Active Substance: OMALIZUMAB
     Indication: Pemphigoid
     Dosage: 2 SYRINGES, 150MG
     Route: 058
  2. XOLAIR [Suspect]
     Active Substance: OMALIZUMAB
  3. XOLAIR [Suspect]
     Active Substance: OMALIZUMAB
  4. XOLAIR [Suspect]
     Active Substance: OMALIZUMAB
     Indication: Autoimmune disorder
  5. XOLAIR [Suspect]
     Active Substance: OMALIZUMAB
  6. XOLAIR [Suspect]
     Active Substance: OMALIZUMAB
  7. MECLIZINE [Concomitant]
     Active Substance: MECLIZINE HYDROCHLORIDE
  8. METOPROLOL SUCCINATE [Concomitant]
     Active Substance: METOPROLOL SUCCINATE
  9. MORPHINE [Concomitant]
     Active Substance: MORPHINE
  10. BACTROBAN [Concomitant]
     Active Substance: MUPIROCIN\MUPIROCIN CALCIUM
  11. ELIQUIS [Concomitant]
     Active Substance: APIXABAN
  12. SILDENAFIL [Concomitant]
     Active Substance: SILDENAFIL
  13. BUPROPION [Concomitant]
     Active Substance: BUPROPION
  14. GLIMEPIRIDE [Concomitant]
     Active Substance: GLIMEPIRIDE
  15. METFORMIN [Concomitant]
     Active Substance: METFORMIN HYDROCHLORIDE
  16. LOVENOX [Concomitant]
     Active Substance: ENOXAPARIN SODIUM
  17. NOVOLOG [Concomitant]
     Active Substance: INSULIN ASPART
  18. LANTUS [Concomitant]
     Active Substance: INSULIN GLARGINE
  19. PREDNISONE [Concomitant]
     Active Substance: PREDNISONE
     Route: 048
  20. PREDNISONE [Concomitant]
     Active Substance: PREDNISONE
     Route: 048
  21. DOXYCYCLINE [Concomitant]
     Active Substance: DOXYCYCLINE
     Route: 048
  22. LIDOCAINE [Concomitant]
     Active Substance: LIDOCAINE
  23. TRIAMCINOLONE [Concomitant]
     Active Substance: TRIAMCINOLONE
  24. NIACINAMIDE [Concomitant]
     Active Substance: NIACINAMIDE
     Dosage: 2 TABLET ORALLY TWICE A DAILY
     Route: 048

REACTIONS (6)
  - Dementia [Unknown]
  - Pneumonia [Unknown]
  - Ulcer haemorrhage [Unknown]
  - Haematological infection [Unknown]
  - Parkinson^s disease [Unknown]
  - Intentional product use issue [Unknown]
